FAERS Safety Report 12374885 (Version 1)
Quarter: 2016Q2

REPORT INFORMATION
  Report Type: Spontaneous
  Country: US (occurrence: None)
  Receive Date: 20160516
  Receipt Date: 20160516
  Transmission Date: 20160815
  Serious: No
  Sender: FDA-Public Use
  Company Number: None

PATIENT
  Age: 71 Year
  Sex: Male
  Weight: 82.5 kg

DRUGS (1)
  1. MORPHINE [Suspect]
     Active Substance: MORPHINE
     Route: 058
     Dates: start: 20150813

REACTIONS (2)
  - Pruritus [None]
  - Infusion site urticaria [None]

NARRATIVE: CASE EVENT DATE: 20150813
